FAERS Safety Report 14477492 (Version 1)
Quarter: 2018Q1

REPORT INFORMATION
  Report Type: Report from Study
  Country: US (occurrence: US)
  Receive Date: 20180201
  Receipt Date: 20180201
  Transmission Date: 20180509
  Serious: No
  Sender: FDA-Public Use
  Company Number: US-EXELIXIS-CABO-17010265

PATIENT
  Sex: Female

DRUGS (15)
  1. OMEPRAZOLE. [Concomitant]
     Active Substance: OMEPRAZOLE
  2. CLARITIN [Concomitant]
     Active Substance: LORATADINE
  3. COMETRIQ [Suspect]
     Active Substance: CABOZANTINIB S-MALATE
     Indication: BRAIN NEOPLASM MALIGNANT
  4. ESCITALOPRAM [Concomitant]
     Active Substance: ESCITALOPRAM OXALATE
  5. COMETRIQ [Suspect]
     Active Substance: CABOZANTINIB S-MALATE
     Indication: BREAST CANCER FEMALE
     Dosage: 60 MG, QD
     Route: 048
     Dates: start: 201708
  6. NORCO [Concomitant]
     Active Substance: ACETAMINOPHEN\HYDROCODONE BITARTRATE
  7. COMETRIQ [Suspect]
     Active Substance: CABOZANTINIB S-MALATE
     Indication: METASTASES TO LUNG
  8. OXYCODONE [Concomitant]
     Active Substance: OXYCODONE
  9. ASPIRIN. [Concomitant]
     Active Substance: ASPIRIN
  10. DEXAMETHASONE. [Concomitant]
     Active Substance: DEXAMETHASONE
  11. ZOLPIDEM [Concomitant]
     Active Substance: ZOLPIDEM\ZOLPIDEM TARTRATE
  12. KADCYLA [Concomitant]
     Active Substance: ADO-TRASTUZUMAB EMTANSINE
  13. FASLODEX [Concomitant]
     Active Substance: FULVESTRANT
  14. HERCEPTIN [Concomitant]
     Active Substance: TRASTUZUMAB
  15. RIBOCICLIB. [Concomitant]
     Active Substance: RIBOCICLIB

REACTIONS (2)
  - Adverse drug reaction [Unknown]
  - Off label use [Unknown]
